FAERS Safety Report 4915994-5 (Version None)
Quarter: 2006Q1

REPORT INFORMATION
  Report Type: 
  Country: None (occurrence: None)
  Receive Date: 20060214
  Receipt Date: 20060126
  Transmission Date: 20060701
  Serious: Yes (Hospitalization, Other)
  Sender: FDA-Public Use
  Company Number: US200601004609

PATIENT
  Age: 67 Year
  Sex: Female

DRUGS (3)
  1. HUMULIN L [Suspect]
     Indication: DIABETES MELLITUS
     Dates: start: 19810101
  2. GEMFIBROZIL [Concomitant]
  3. PREMARIN [Concomitant]

REACTIONS (21)
  - ASTHENIA [None]
  - BLINDNESS UNILATERAL [None]
  - BLISTER [None]
  - BLOOD CHOLESTEROL INCREASED [None]
  - BLOOD PRESSURE INCREASED [None]
  - CATARACT [None]
  - CEREBROVASCULAR ACCIDENT [None]
  - DIFFICULTY IN WALKING [None]
  - DIZZINESS [None]
  - EYE DISORDER [None]
  - EYE HAEMORRHAGE [None]
  - EYE INJURY [None]
  - FALL [None]
  - FAMILIAL TREMOR [None]
  - INTRAOCULAR PRESSURE INCREASED [None]
  - PALPITATIONS [None]
  - PANCREATITIS ACUTE [None]
  - THERMAL BURN [None]
  - THROMBOSIS [None]
  - ULCER HAEMORRHAGE [None]
  - WHEELCHAIR USER [None]
